FAERS Safety Report 25278444 (Version 1)
Quarter: 2025Q2

REPORT INFORMATION
  Report Type: Spontaneous
  Country: US (occurrence: None)
  Receive Date: 20250507
  Receipt Date: 20250507
  Transmission Date: 20250717
  Serious: No
  Sender: AXSOME THERAPEUTICS, INC.
  Company Number: US-Axsome Therapeutics, Inc.-AXS202504-000651

PATIENT
  Age: 63 Year
  Sex: Female

DRUGS (1)
  1. AUVELITY [Suspect]
     Active Substance: BUPROPION HYDROCHLORIDE\DEXTROMETHORPHAN HYDROBROMIDE
     Indication: Product used for unknown indication
     Route: 065

REACTIONS (7)
  - Brain fog [Unknown]
  - Abdominal pain upper [Unknown]
  - Insomnia [Unknown]
  - Anxiety [Unknown]
  - Headache [Unknown]
  - Depression [Unknown]
  - Decreased appetite [Unknown]
